FAERS Safety Report 4452119-7 (Version None)
Quarter: 2004Q3

REPORT INFORMATION
  Report Type: 
  Country: None (occurrence: None)
  Receive Date: 20040914
  Receipt Date: 20040831
  Transmission Date: 20050211
  Serious: Yes (Hospitalization)
  Sender: FDA-Public Use
  Company Number: 2004UW18449

PATIENT
  Age: 69 Year
  Sex: Female

DRUGS (3)
  1. CRESTOR [Suspect]
     Dosage: 20 MG PO
     Route: 048
     Dates: start: 20040601, end: 20040810
  2. TYLENOL [Concomitant]
  3. ALCOHOL [Concomitant]

REACTIONS (3)
  - DIZZINESS [None]
  - HEPATITIS [None]
  - MYOPATHY [None]
